FAERS Safety Report 19568685 (Version 1)
Quarter: 2021Q3

REPORT INFORMATION
  Report Type: Report from Study
  Country: US (occurrence: US)
  Receive Date: 20210715
  Receipt Date: 20210715
  Transmission Date: 20211014
  Serious: Yes (Hospitalization)
  Sender: FDA-Public Use
  Company Number: US-EISAI MEDICAL RESEARCH-EC-2021-095891

PATIENT
  Age: 65 Year
  Sex: Male
  Weight: 80.9 kg

DRUGS (1)
  1. LENVIMA [Suspect]
     Active Substance: LENVATINIB
     Indication: HEPATOCELLULAR CARCINOMA
     Route: 048
     Dates: start: 20210504

REACTIONS (6)
  - Arthralgia [Unknown]
  - Fatigue [Unknown]
  - Lethargy [Unknown]
  - Dysuria [Unknown]
  - Weight decreased [Unknown]
  - Dehydration [Recovered/Resolved]

NARRATIVE: CASE EVENT DATE: 202105
